FAERS Safety Report 4524367-9 (Version None)
Quarter: 2004Q4

REPORT INFORMATION
  Report Type: 
  Country: None (occurrence: None)
  Receive Date: 20041119
  Receipt Date: 20040818
  Transmission Date: 20050328
  Serious: No
  Sender: FDA-Public Use
  Company Number: 208590

PATIENT
  Age: 46 Year
  Sex: Female

DRUGS (5)
  1. RAPTIVA [Suspect]
     Indication: PSORIASIS
     Dosage: 0.7 MG/KG, SINGLE, SUBCUTANEOUS
     Route: 058
     Dates: start: 20040530
  2. METHOTREXATE [Concomitant]
  3. NEURONTIN [Concomitant]
  4. LIDOCAINE [Concomitant]
  5. DARVOCET [Concomitant]

REACTIONS (2)
  - ARTHRITIS [None]
  - INFLUENZA LIKE ILLNESS [None]
